FAERS Safety Report 7206317-X (Version None)
Quarter: 2011Q1

REPORT INFORMATION
  Report Type: 
  Country: None (occurrence: None)
  Receive Date: 20110103
  Receipt Date: 20110103
  Transmission Date: 20110831
  Serious: Yes (Hospitalization)
  Sender: FDA-Public Use
  Company Number: PHHO2008DE02111

PATIENT
  Sex: Male

DRUGS (2)
  1. CERTICAN [Suspect]
     Dosage: CODE NOT BROKEN
     Dates: start: 20080212
  2. CERTICAN [Suspect]
     Indication: CONGENITAL CYSTIC KIDNEY DISEASE
     Dosage: UNK
     Route: 048
     Dates: end: 20080204

REACTIONS (7)
  - PYELONEPHRITIS [None]
  - HAEMATURIA [None]
  - FLANK PAIN [None]
  - RENAL CYST HAEMORRHAGE [None]
  - C-REACTIVE PROTEIN INCREASED [None]
  - LEUKOCYTOSIS [None]
  - PYREXIA [None]
